FAERS Safety Report 5707237-X (Version None)
Quarter: 2008Q2

REPORT INFORMATION
  Report Type: 
  Country: None (occurrence: None)
  Receive Date: 20080414
  Receipt Date: 20080414
  Transmission Date: 20081010
  Serious: Yes (Hospitalization)
  Sender: FDA-Public Use
  Company Number: None

PATIENT
  Sex: Female

DRUGS (1)
  1. RECLAST [Suspect]
     Indication: OSTEOPOROSIS
     Dosage: 5MG ONCE PER MONTH IV
     Route: 042
     Dates: start: 20080227, end: 20080227

REACTIONS (3)
  - ATRIAL FIBRILLATION [None]
  - INFLUENZA LIKE ILLNESS [None]
  - TACHYCARDIA [None]
